FAERS Safety Report 5182922-X (Version None)
Quarter: 2006Q4

REPORT INFORMATION
  Report Type: 
  Country: None (occurrence: None)
  Receive Date: 20061220
  Receipt Date: 20061208
  Transmission Date: 20070319
  Serious: Yes (Hospitalization)
  Sender: FDA-Public Use
  Company Number: US-AMGEN-US202948

PATIENT
  Sex: Female

DRUGS (2)
  1. ENBREL [Suspect]
     Indication: RHEUMATOID ARTHRITIS
     Route: 058
     Dates: start: 20031003
  2. TEQUIN [Concomitant]

REACTIONS (4)
  - ATRIAL FIBRILLATION [None]
  - DRUG HYPERSENSITIVITY [None]
  - HYPERSENSITIVITY [None]
  - INFLUENZA [None]
